FAERS Safety Report 21561108 (Version 3)
Quarter: 2022Q4

REPORT INFORMATION
  Report Type: Report from Study
  Country: US (occurrence: US)
  Receive Date: 20221107
  Receipt Date: 20221215
  Transmission Date: 20230112
  Serious: Yes (Hospitalization)
  Sender: FDA-Public Use
  Company Number: US-ABBVIE-4156034

PATIENT
  Sex: Female

DRUGS (3)
  1. RINVOQ [Suspect]
     Active Substance: UPADACITINIB
     Indication: Rheumatoid arthritis
     Dosage: FORM STRENGTH: 15 MILLIGRAM?ER
     Route: 048
     Dates: start: 2022, end: 2022
  2. RINVOQ [Suspect]
     Active Substance: UPADACITINIB
     Indication: Rheumatoid arthritis
     Dosage: FORM STRENGTH: 15 MILLIGRAM?ER
     Route: 048
     Dates: start: 20220701
  3. RINVOQ [Suspect]
     Active Substance: UPADACITINIB
     Indication: Rheumatoid arthritis
     Dosage: FORM STRENGTH: 15 MILLIGRAM?DRUG END DATE 2022?ER
     Route: 048
     Dates: start: 2022, end: 2022

REACTIONS (11)
  - Fall [Unknown]
  - Fatigue [Unknown]
  - Haematoma [Recovered/Resolved]
  - Skin abrasion [Unknown]
  - Discomfort [Unknown]
  - Drug ineffective [Unknown]
  - Arthralgia [Not Recovered/Not Resolved]
  - Dehydration [Unknown]
  - Joint range of motion decreased [Unknown]
  - Contusion [Unknown]
  - Anxiety [Unknown]

NARRATIVE: CASE EVENT DATE: 20220101
